FAERS Safety Report 20308522 (Version 1)
Quarter: 2022Q1

REPORT INFORMATION
  Report Type: Spontaneous
  Country: CA (occurrence: CA)
  Receive Date: 20220107
  Receipt Date: 20220107
  Transmission Date: 20220424
  Serious: Yes (Other)
  Sender: FDA-Public Use
  Company Number: CA-ABBVIE-22K-028-4223796-00

PATIENT
  Age: 43 Year
  Sex: Female
  Weight: 78 kg

DRUGS (8)
  1. HUMIRA [Suspect]
     Active Substance: ADALIMUMAB
     Indication: Product used for unknown indication
     Route: 058
  2. INFLECTRA [Suspect]
     Active Substance: INFLIXIMAB-DYYB
     Indication: Crohn^s disease
     Dosage: 11 MONTHS 7 DAYS
     Route: 042
     Dates: start: 20190225, end: 20200131
  3. INFLECTRA [Suspect]
     Active Substance: INFLIXIMAB-DYYB
     Dosage: 2,6 WEEKS THEN EVERY 6 WEEKS
     Route: 042
     Dates: start: 20200214, end: 20200313
  4. INFLECTRA [Suspect]
     Active Substance: INFLIXIMAB-DYYB
     Dosage: 0,2,6 WEEK DOSE THEN EVERY 6 WEEKS
     Route: 042
  5. CIPRALEX [Suspect]
     Active Substance: ESCITALOPRAM OXALATE
     Indication: Product used for unknown indication
     Route: 065
     Dates: start: 20191205
  6. METHOTREXATE [Suspect]
     Active Substance: METHOTREXATE
     Indication: Product used for unknown indication
     Route: 058
     Dates: start: 202104, end: 202104
  7. SULFASALAZINE [Suspect]
     Active Substance: SULFASALAZINE
     Indication: Abdominal pain
     Route: 065
  8. SULFASALAZINE [Suspect]
     Active Substance: SULFASALAZINE
     Indication: Pain

REACTIONS (9)
  - Stoma obstruction [Unknown]
  - Colitis [Unknown]
  - Drug intolerance [Unknown]
  - Drug intolerance [Unknown]
  - Drug ineffective [Unknown]
  - Synovitis [Unknown]
  - Drug ineffective [Unknown]
  - Abdominal pain [Unknown]
  - Pain [Unknown]

NARRATIVE: CASE EVENT DATE: 20200810
